FAERS Safety Report 8537471-5 (Version None)
Quarter: 2012Q3

REPORT INFORMATION
  Report Type: 
  Country: None (occurrence: None)
  Receive Date: 20120725
  Receipt Date: 20120720
  Transmission Date: 20120928
  Serious: Yes (Other)
  Sender: FDA-Public Use
  Company Number: US-TEVA-349823USA

PATIENT

DRUGS (1)
  1. CLARAVIS [Suspect]
     Route: 048

REACTIONS (3)
  - LIGAMENT INJURY [None]
  - TENDONITIS [None]
  - LIGAMENT RUPTURE [None]
